FAERS Safety Report 24578137 (Version 1)
Quarter: 2024Q4

REPORT INFORMATION
  Report Type: Spontaneous
  Country: CN (occurrence: CN)
  Receive Date: 20241104
  Receipt Date: 20241104
  Transmission Date: 20250115
  Serious: Yes (Other)
  Sender: ABBVIE
  Company Number: CN-ABBVIE-5983028

PATIENT
  Age: 65 Year
  Sex: Female
  Weight: 50 kg

DRUGS (2)
  1. VENETOCLAX [Suspect]
     Active Substance: VENETOCLAX
     Indication: Neoplasm prophylaxis
     Dosage: 400 MILLIGRAM
     Route: 048
     Dates: start: 20240916, end: 20240930
  2. CYTARABINE [Concomitant]
     Active Substance: CYTARABINE
     Indication: Neoplasm malignant
     Dosage: 400 MILLIGRAM
     Route: 041
     Dates: start: 20240816, end: 20240820

REACTIONS (2)
  - Pancytopenia [Not Recovered/Not Resolved]
  - Myelosuppression [Unknown]

NARRATIVE: CASE EVENT DATE: 20240101
